FAERS Safety Report 11885987 (Version 1)
Quarter: 2016Q1

REPORT INFORMATION
  Report Type: Report from Study
  Country: US (occurrence: US)
  Receive Date: 20160104
  Receipt Date: 20160104
  Transmission Date: 20160526
  Serious: Yes (Other)
  Sender: FDA-Public Use
  Company Number: US-INDIVIOR LIMITED-INDV-086694-2015

PATIENT
  Age: 39 Year
  Sex: Female

DRUGS (2)
  1. SUBOXONE [Suspect]
     Active Substance: BUPRENORPHINE HYDROCHLORIDE\NALOXONE HYDROCHLORIDE
     Indication: DRUG DEPENDENCE
     Dosage: 12MG, DAILY FOR 2 MONTHS
     Route: 060
     Dates: start: 2012, end: 2012
  2. SUBOXONE [Suspect]
     Active Substance: BUPRENORPHINE HYDROCHLORIDE\NALOXONE HYDROCHLORIDE
     Dosage: 16MG, DAILY FOR ABOUT 3 YEARS
     Route: 060
     Dates: start: 2012, end: 201510

REACTIONS (7)
  - Shock [Not Recovered/Not Resolved]
  - Therapy cessation [Recovered/Resolved]
  - Ligament rupture [Not Recovered/Not Resolved]
  - Seizure [Recovered/Resolved]
  - Product preparation error [Recovered/Resolved]
  - Drug ineffective [Recovered/Resolved]
  - Drug withdrawal syndrome [Not Recovered/Not Resolved]

NARRATIVE: CASE EVENT DATE: 2012
